FAERS Safety Report 5848584-0 (Version None)
Quarter: 2008Q3

REPORT INFORMATION
  Report Type: 
  Country: None (occurrence: None)
  Receive Date: 20080818
  Receipt Date: 20080807
  Transmission Date: 20090109
  Serious: Yes (Hospitalization)
  Sender: FDA-Public Use
  Company Number: FR-ROCHE-580510

PATIENT
  Age: 85 Year
  Sex: Male

DRUGS (3)
  1. RIVOTRIL [Suspect]
     Indication: AGITATION
     Route: 048
  2. XATRAL [Suspect]
     Indication: PROSTATIC DISORDER
     Dosage: DRUG REPORTED AS XATRAL LP 10 MG
     Route: 048
     Dates: start: 20071001, end: 20071021
  3. MADOPAR [Concomitant]
     Dosage: DOSAGE WAS UNCHANGED

REACTIONS (2)
  - HYPOTENSION [None]
  - MALAISE [None]
